FAERS Safety Report 18836575 (Version 1)
Quarter: 2021Q1

REPORT INFORMATION
  Report Type: Spontaneous
  Country: US (occurrence: US)
  Receive Date: 20210203
  Receipt Date: 20210203
  Transmission Date: 20210419
  Serious: No
  Sender: FDA-Public Use
  Company Number: US-ALLERGAN-2010065US

PATIENT

DRUGS (1)
  1. BOTOX COSMETIC [Suspect]
     Active Substance: ONABOTULINUMTOXINA
     Indication: PRODUCT USED FOR UNKNOWN INDICATION
     Dosage: UNK, SINGLE
     Dates: start: 20200303, end: 20200303

REACTIONS (4)
  - Headache [Unknown]
  - Injection site pain [Recovered/Resolved]
  - Multiple use of single-use product [Unknown]
  - Administration site pain [Recovered/Resolved]

NARRATIVE: CASE EVENT DATE: 20200303
